FAERS Safety Report 16956258 (Version 7)
Quarter: 2020Q4

REPORT INFORMATION
  Report Type: Other
  Country: DE (occurrence: DE)
  Receive Date: 20191024
  Receipt Date: 20201111
  Transmission Date: 20210113
  Serious: Yes (Hospitalization, Other)
  Sender: FDA-Public Use
  Company Number: DE-ROCHE-2200037

PATIENT
  Age: 46 Year
  Sex: Female

DRUGS (7)
  1. CITALOPRAM [Concomitant]
     Active Substance: CITALOPRAM HYDROBROMIDE
     Dosage: 1-0-0
  2. OCREVUS [Suspect]
     Active Substance: OCRELIZUMAB
     Indication: SECONDARY PROGRESSIVE MULTIPLE SCLEROSIS
     Route: 042
     Dates: start: 20180115
  3. BACLOFEN. [Concomitant]
     Active Substance: BACLOFEN
     Dosage: 1-0-1
  4. FAMPYRA [Concomitant]
     Active Substance: DALFAMPRIDINE
     Dosage: 1-0-1
  5. OCREVUS [Suspect]
     Active Substance: OCRELIZUMAB
     Indication: PROGRESSIVE RELAPSING MULTIPLE SCLEROSIS
     Dosage: 21/OCT/2019
     Route: 042
     Dates: start: 20190408, end: 202006
  6. SIPONIMOD [Suspect]
     Active Substance: SIPONIMOD
     Indication: PRODUCT USED FOR UNKNOWN INDICATION
     Route: 048
     Dates: start: 202006, end: 202006
  7. TIZANIDIN [Concomitant]
     Active Substance: TIZANIDINE HYDROCHLORIDE

REACTIONS (18)
  - Depressed mood [Recovered/Resolved]
  - Gait disturbance [Not Recovered/Not Resolved]
  - Balance disorder [Not Recovered/Not Resolved]
  - Dizziness [Recovered/Resolved]
  - Asthenia [Recovered/Resolved]
  - Multiple sclerosis relapse [Recovered/Resolved]
  - Listless [Recovered/Resolved]
  - Hypoaesthesia [Not Recovered/Not Resolved]
  - Malaise [Not Recovered/Not Resolved]
  - Tooth fracture [Recovered/Resolved]
  - Fine motor skill dysfunction [Not Recovered/Not Resolved]
  - Intentional product use issue [Unknown]
  - Off label use [Unknown]
  - Multiple sclerosis [Not Recovered/Not Resolved]
  - Drug ineffective [Unknown]
  - B-lymphocyte count abnormal [Recovered/Resolved]
  - Tinnitus [Recovered/Resolved]
  - Foot deformity [Not Recovered/Not Resolved]

NARRATIVE: CASE EVENT DATE: 20180115
